FAERS Safety Report 4455802-2 (Version None)
Quarter: 2004Q3

REPORT INFORMATION
  Report Type: 
  Country: None (occurrence: None)
  Receive Date: 20040917
  Receipt Date: 20040826
  Transmission Date: 20050211
  Serious: Yes (Hospitalization)
  Sender: FDA-Public Use
  Company Number: DE_040814199

PATIENT
  Sex: Male

DRUGS (3)
  1. HUMATROPE [Suspect]
     Indication: PROPHYLAXIS
     Dosage: 1.33 MG/1 MONTH
     Dates: end: 20040801
  2. CHELATED MINERAL [Concomitant]
  3. THYMIC HORMONE [Concomitant]

REACTIONS (3)
  - BACK DISORDER [None]
  - CARDIOVASCULAR DISORDER [None]
  - PAIN IN EXTREMITY [None]
